FAERS Safety Report 9908104 (Version 1)
Quarter: 2014Q1

REPORT INFORMATION
  Report Type: Spontaneous
  Country: US (occurrence: None)
  Receive Date: 20140212
  Receipt Date: 20140212
  Transmission Date: 20141002
  Serious: Yes (Hospitalization, Disabling)
  Sender: FDA-Public Use
  Company Number: None

PATIENT
  Age: 60 Year
  Sex: Female

DRUGS (8)
  1. ABILIFY [Suspect]
     Indication: SCHIZOPHRENIA
     Dosage: 5 MG?2 PILLS?5MG AM?5MG PM?1 MOUTH
     Route: 048
     Dates: start: 20130507, end: 201307
  2. SINDKIN C [Concomitant]
  3. GARLIC [Concomitant]
  4. CALCIUM [Concomitant]
  5. GABAPENTIN [Concomitant]
  6. ALPRAZOLAM [Concomitant]
  7. DELPHENSIN [Concomitant]
  8. RESPERDAL [Concomitant]

REACTIONS (3)
  - Cardiac murmur [None]
  - Muscle atrophy [None]
  - Sensory loss [None]
